FAERS Safety Report 20461838 (Version 3)
Quarter: 2023Q1

REPORT INFORMATION
  Report Type: Report from Study
  Country: US (occurrence: US)
  Receive Date: 20220211
  Receipt Date: 20230316
  Transmission Date: 20230418
  Serious: Yes (Other)
  Sender: FDA-Public Use
  Company Number: US-TAKEDA-2022TUS009245

PATIENT
  Sex: Female

DRUGS (8)
  1. TEDUGLUTIDE [Suspect]
     Active Substance: TEDUGLUTIDE
     Indication: Short-bowel syndrome
     Dosage: 0.098 MILLILITER, QD
     Route: 050
     Dates: start: 20200820
  2. TEDUGLUTIDE [Suspect]
     Active Substance: TEDUGLUTIDE
     Indication: Short-bowel syndrome
     Dosage: 0.098 MILLILITER, QD
     Route: 050
     Dates: start: 20200820
  3. TEDUGLUTIDE [Suspect]
     Active Substance: TEDUGLUTIDE
     Indication: Short-bowel syndrome
     Dosage: 0.098 MILLILITER, QD
     Route: 050
     Dates: start: 20200820
  4. TEDUGLUTIDE [Suspect]
     Active Substance: TEDUGLUTIDE
     Indication: Short-bowel syndrome
     Dosage: 0.098 MILLILITER, QD
     Route: 050
     Dates: start: 20200820
  5. TEDUGLUTIDE [Suspect]
     Active Substance: TEDUGLUTIDE
     Dosage: 0.098 MILLILITER, QD
     Route: 050
     Dates: start: 20210126
  6. TEDUGLUTIDE [Suspect]
     Active Substance: TEDUGLUTIDE
     Dosage: 0.098 MILLILITER, QD
     Route: 050
     Dates: start: 20210126
  7. TEDUGLUTIDE [Suspect]
     Active Substance: TEDUGLUTIDE
     Dosage: 0.098 MILLILITER, QD
     Route: 050
     Dates: start: 20210126
  8. TEDUGLUTIDE [Suspect]
     Active Substance: TEDUGLUTIDE
     Dosage: 0.098 MILLILITER, QD
     Route: 050
     Dates: start: 20210126

REACTIONS (3)
  - Metabolic acidosis [Not Recovered/Not Resolved]
  - Weight increased [Unknown]
  - Viral infection [Recovering/Resolving]
